FAERS Safety Report 24136890 (Version 1)
Quarter: 2024Q3

REPORT INFORMATION
  Report Type: Spontaneous
  Country: US (occurrence: US)
  Receive Date: 20240725
  Receipt Date: 20240725
  Transmission Date: 20241017
  Serious: No
  Sender: TORRENT
  Company Number: US-TORRENT-00013689

PATIENT
  Sex: Male

DRUGS (1)
  1. ARIPIPRAZOLE [Suspect]
     Active Substance: ARIPIPRAZOLE
     Indication: Depression
     Dosage: UNKNOWN
     Route: 065

REACTIONS (2)
  - Abdominal distension [Unknown]
  - Constipation [Unknown]
